FAERS Safety Report 24401705 (Version 1)
Quarter: 2024Q4

REPORT INFORMATION
  Report Type: Spontaneous
  Country: US (occurrence: US)
  Receive Date: 20241007
  Receipt Date: 20241007
  Transmission Date: 20250115
  Serious: No
  Sender: ROCHE
  Company Number: US-ROCHE-10000097803

PATIENT
  Age: 57 Year
  Sex: Male

DRUGS (1)
  1. XOLAIR PFS [Suspect]
     Active Substance: OMALIZUMAB
     Indication: Idiopathic urticaria
     Dosage: STRENGTH 150 MG/ML
     Route: 058
     Dates: start: 202406

REACTIONS (3)
  - Drug ineffective [Unknown]
  - Rash [Unknown]
  - Urticaria [Unknown]
